FAERS Safety Report 21359951 (Version 1)
Quarter: 2022Q3

REPORT INFORMATION
  Report Type: Spontaneous
  Country: None (occurrence: FR)
  Receive Date: 20220921
  Receipt Date: 20220921
  Transmission Date: 20221026
  Serious: Yes (Hospitalization, Other)
  Sender: FDA-Public Use
  Company Number: FR-B.Braun Medical Inc.-2133041

PATIENT
  Age: 24 Year
  Sex: Male

DRUGS (5)
  1. ACETAMINOPHEN [Suspect]
     Active Substance: ACETAMINOPHEN
  2. TRAMADOL HYDROCHLORIDE [Suspect]
     Active Substance: TRAMADOL HYDROCHLORIDE
  3. MIDAZOLAM [Suspect]
     Active Substance: MIDAZOLAM
  4. ZOPICLONE [Suspect]
     Active Substance: ZOPICLONE
  5. LIDOCAINE [Suspect]
     Active Substance: LIDOCAINE

REACTIONS (6)
  - Coma [Recovered/Resolved]
  - Miosis [Recovered/Resolved]
  - Arrhythmia [Recovered/Resolved]
  - Cardiogenic shock [Recovered/Resolved]
  - Poisoning [Recovered/Resolved]
  - Polyuria [Recovered/Resolved]
